FAERS Safety Report 24657970 (Version 1)
Quarter: 2024Q4

REPORT INFORMATION
  Report Type: Spontaneous
  Country: DE (occurrence: DE)
  Receive Date: 20241125
  Receipt Date: 20241125
  Transmission Date: 20250114
  Serious: Yes (Other)
  Sender: CHIESI
  Company Number: DE-CHIESI-2024CHF07448

PATIENT
  Age: 14 Year
  Sex: Female

DRUGS (6)
  1. DEFERIPRONE [Suspect]
     Active Substance: DEFERIPRONE
     Indication: Thalassaemia
     Dosage: 25 MILLIGRAM/KILOGRAM, TID
     Route: 048
  2. DEFERIPRONE [Suspect]
     Active Substance: DEFERIPRONE
     Dosage: UNK UNK, TID
     Route: 048
  3. DEFERASIROX [Concomitant]
     Active Substance: DEFERASIROX
     Indication: Thalassaemia
     Dosage: 14 MILLIGRAM/KILOGRAM
  4. DEFERASIROX [Concomitant]
     Active Substance: DEFERASIROX
     Dosage: 21 MILLIGRAM/KILOGRAM
  5. VITAMIN D [Concomitant]
     Active Substance: VITAMIN D NOS
     Indication: Vitamin D deficiency
     Dosage: UNK
  6. FOLIC ACID [Concomitant]
     Active Substance: FOLIC ACID
     Indication: Vitamin D deficiency
     Dosage: UNK

REACTIONS (8)
  - Cardiac iron overload [Recovered/Resolved]
  - Aneurysmal bone cyst [Recovered/Resolved]
  - Serum ferritin increased [Recovering/Resolving]
  - Nausea [Recovered/Resolved]
  - Vomiting [Recovered/Resolved]
  - Drug ineffective [Recovered/Resolved]
  - Treatment noncompliance [Recovered/Resolved]
  - Off label use [Not Recovered/Not Resolved]
